FAERS Safety Report 12978170 (Version 1)
Quarter: 2016Q4

REPORT INFORMATION
  Report Type: Spontaneous
  Country: US (occurrence: US)
  Receive Date: 20161126
  Receipt Date: 20161126
  Transmission Date: 20170207
  Serious: Yes (Life-Threatening)
  Sender: FDA-Public Use
  Company Number: None

PATIENT
  Age: 28 Year
  Sex: Female
  Weight: 58.5 kg

DRUGS (3)
  1. FENTANYL TRANSDERMAL SYSTEM [Suspect]
     Active Substance: FENTANYL
  2. FENTANYL TRANSDERMAL SYSTEM [Suspect]
     Active Substance: FENTANYL
     Indication: SCIATICA
     Dosage: ?          OTHER STRENGTH:MCG/H;QUANTITY:10 PATCH(ES);OTHER FREQUENCY:EVERY 72 HOURS;?
     Route: 062
  3. FENTANYL TRANSDERMAL SYSTEM [Suspect]
     Active Substance: FENTANYL
     Indication: SPINAL OSTEOARTHRITIS
     Dosage: ?          OTHER STRENGTH:MCG/H;QUANTITY:10 PATCH(ES);OTHER FREQUENCY:EVERY 72 HOURS;?
     Route: 062

REACTIONS (11)
  - Product adhesion issue [None]
  - Device leakage [None]
  - Dyspnoea [None]
  - Rash [None]
  - Pain [None]
  - Product quality issue [None]
  - Migraine [None]
  - Asthenia [None]
  - Application site irritation [None]
  - Vomiting [None]
  - Drug ineffective [None]
